FAERS Safety Report 4840370-3 (Version None)
Quarter: 2005Q4

REPORT INFORMATION
  Report Type: 
  Country: None (occurrence: None)
  Receive Date: 20051025
  Receipt Date: 20050325
  Transmission Date: 20060501
  Serious: Yes (Hospitalization)
  Sender: FDA-Public Use
  Company Number: 2005-BP-04903BP

PATIENT
  Age: 71 Year
  Sex: Male
  Weight: 107.5 kg

DRUGS (6)
  1. COMBIVENT [Suspect]
     Indication: ASTHMA
     Dosage: 4 PUF (SEE TEXT,18MCG/103MCG STRENGTH - 2 PUFFS BID DAILY PRN),IH
     Dates: start: 20041101, end: 20050310
  2. PULMICORT [Concomitant]
  3. SEREVENT DISKUS (SALMETEROL XINAFOATE) [Concomitant]
  4. SINGULAIR [Concomitant]
  5. NOVOLIN N [Concomitant]
  6. ZOCOR [Concomitant]

REACTIONS (1)
  - DYSPNOEA [None]
